FAERS Safety Report 17136927 (Version 1)
Quarter: 2019Q4

REPORT INFORMATION
  Report Type: Spontaneous
  Country: JP (occurrence: JP)
  Receive Date: 20191210
  Receipt Date: 20191210
  Transmission Date: 20200122
  Serious: Yes (Other)
  Sender: FDA-Public Use
  Company Number: JP-009507513-1802JPN000822J

PATIENT
  Sex: Male

DRUGS (16)
  1. OLMETEC [Suspect]
     Active Substance: OLMESARTAN MEDOXOMIL
     Dosage: 20 MILLIGRAM, QD, AFTER BREAKFAST
     Route: 048
  2. LENDORMIN [Suspect]
     Active Substance: BROTIZOLAM
     Dosage: UNK
     Route: 065
  3. CARDENALIN [Concomitant]
     Active Substance: DOXAZOSIN MESYLATE
     Dosage: 4 MILLIGRAM, QD, AFTER BREAKFAST
     Route: 048
  4. NORVASC [Suspect]
     Active Substance: AMLODIPINE BESYLATE
     Dosage: 7.5 MILLIGRAM, QD, AFTER BREAKFAST
     Route: 048
  5. MAINTATE [Suspect]
     Active Substance: BISOPROLOL FUMARATE
     Dosage: 0.625 MILLIGRAM, QD, AFTER DINNER
     Route: 048
  6. ALINAMIN (PROSULTIAMINE) [Suspect]
     Active Substance: PROSULTIAMINE
     Dosage: 25 MILLIGRAM, TID, AFTER EACH MEAL
     Route: 065
  7. CARDENALIN OD [Concomitant]
     Dosage: 2 MILLIGRAM, QD, AFTER DINNER
     Route: 048
  8. BIO-THREE [Suspect]
     Active Substance: HERBALS
     Dosage: 2 DOSAGE FORM, TID, AFTER EACH MEAL
     Route: 048
  9. OLMETEC [Concomitant]
     Active Substance: OLMESARTAN MEDOXOMIL
     Dosage: 10 MILLIGRAM, QD, AFTER BREAKFAST
     Route: 048
  10. METHYCOBAL [Suspect]
     Active Substance: METHYLCOBALAMIN
     Dosage: 500 MICROGRAM, TID, AFTER EACH MEAL
     Route: 048
  11. SELARA [Suspect]
     Active Substance: EPLERENONE
     Dosage: UNK
     Route: 065
  12. ZETIA [Suspect]
     Active Substance: EZETIMIBE
     Dosage: 10 MILLIGRAM, QD, AFTER BREAKFAST
     Route: 048
     Dates: start: 20180203
  13. RENIVACE TABLETS 5 [Suspect]
     Active Substance: ENALAPRIL
     Indication: BLOOD PRESSURE INCREASED
     Dosage: 5 MILLIGRAM, QD, AFTER BREAKFAST
     Route: 048
     Dates: start: 201911
  14. PARIET [Suspect]
     Active Substance: RABEPRAZOLE SODIUM
     Dosage: UNK
     Route: 048
     Dates: start: 20180203
  15. SIGMART [Suspect]
     Active Substance: NICORANDIL
     Dosage: 5 MILLIGRAM, BID, AFTER BREAKFAST AND DINNER
     Route: 048
  16. DAIOKANZOTO [Concomitant]
     Active Substance: LICORICE ROOT EXTRACT\RHUBARB
     Dosage: 2 DOSAGE FORM, TID, AFTER EACH MEAL
     Route: 048

REACTIONS (14)
  - Oedema peripheral [Recovering/Resolving]
  - Pollakiuria [Unknown]
  - Diarrhoea [Unknown]
  - Hepatic steatosis [Unknown]
  - Petechiae [Unknown]
  - Middle insomnia [Unknown]
  - Muscle spasms [Unknown]
  - Cough [Unknown]
  - Drug ineffective [Unknown]
  - Renal disorder [Unknown]
  - Productive cough [Unknown]
  - Pigmentation disorder [Recovering/Resolving]
  - Arrhythmia [Unknown]
  - Sneezing [Unknown]

NARRATIVE: CASE EVENT DATE: 201802
